FAERS Safety Report 14813935 (Version 1)
Quarter: 2018Q2

REPORT INFORMATION
  Report Type: Spontaneous
  Country: FR (occurrence: FR)
  Receive Date: 20180426
  Receipt Date: 20180426
  Transmission Date: 20180711
  Serious: Yes (Other)
  Sender: FDA-Public Use
  Company Number: FR-MERCK KGAA-2046579

PATIENT
  Age: 61 Year
  Sex: Female

DRUGS (1)
  1. NOVOTHYROX [Suspect]
     Active Substance: LEVOTHYROXINE SODIUM
     Indication: HYPOTHYROIDISM

REACTIONS (18)
  - Dyspepsia [None]
  - Amnesia [None]
  - Asthenia [None]
  - Abnormal behaviour [None]
  - Blood cholesterol increased [None]
  - Impaired driving ability [None]
  - Blood thyroid stimulating hormone decreased [None]
  - Loss of personal independence in daily activities [None]
  - Oesophageal pain [None]
  - Insomnia [None]
  - Suicidal ideation [None]
  - Myalgia [None]
  - Arthralgia [None]
  - Social avoidant behaviour [None]
  - Weight decreased [None]
  - Sleep disorder [None]
  - Vomiting [None]
  - Alopecia [None]

NARRATIVE: CASE EVENT DATE: 201706
